FAERS Safety Report 4309044-1 (Version None)
Quarter: 2004Q1

REPORT INFORMATION
  Report Type: 
  Country: None (occurrence: None)
  Receive Date: 20040301
  Receipt Date: 20040210
  Transmission Date: 20041129
  Serious: Yes (Hospitalization)
  Sender: FDA-Public Use
  Company Number: F01200400295

PATIENT
  Age: 61 Year
  Sex: Female

DRUGS (4)
  1. (OXALIPLATIN) - SOLUTION - 140 MG [Suspect]
     Indication: COLORECTAL CANCER METASTATIC
     Dosage: 140 MG Q2W, INTRAVENOUS NOS
     Route: 042
     Dates: start: 20031231, end: 20031231
  2. (FLUOROURACIL) - SOLUTION - 1760 MG [Suspect]
     Dosage: 680 MG IV BOLUS AND 1080 MG IV CONTINUOUS INFUSION Q2W, INTRAVENOUS NOS
     Route: 042
     Dates: start: 20031231, end: 20031231
  3. (FOLINIC ACID) - SOLUTION - 340 MG [Suspect]
     Dosage: 340 MG Q2W, INTRAVENOUS NOS
     Route: 042
     Dates: start: 20031231, end: 20031231
  4. (PTK787/ZK222584 OR PLACEBO) - TABLET - 1250 MG [Suspect]
     Dosage: 1250 MG Q2W, ORAL
     Route: 048
     Dates: start: 20031231, end: 20031231

REACTIONS (5)
  - ABNORMAL SENSATION IN EYE [None]
  - CAECITIS [None]
  - EYE DISCHARGE [None]
  - FEBRILE NEUTROPENIA [None]
  - MOUTH ULCERATION [None]
